FAERS Safety Report 16540114 (Version 1)
Quarter: 2019Q3

REPORT INFORMATION
  Report Type: Spontaneous
  Country: PT (occurrence: PT)
  Receive Date: 20190708
  Receipt Date: 20190708
  Transmission Date: 20191004
  Serious: Yes (Hospitalization, Other)
  Sender: FDA-Public Use
  Company Number: PT-MYLANLABS-2019M1061636

PATIENT
  Age: 37 Year
  Sex: Male

DRUGS (2)
  1. CANDESARTAN/HYDROCHLOROTHIAZIDE [Suspect]
     Active Substance: CANDESARTAN CILEXETIL\HYDROCHLOROTHIAZIDE
     Indication: BLOOD PRESSURE MANAGEMENT
     Dosage: UNK
  2. ALPRAZOLAM. [Suspect]
     Active Substance: ALPRAZOLAM
     Indication: PRODUCT USED FOR UNKNOWN INDICATION
     Dosage: UNK

REACTIONS (7)
  - Anxiety [Unknown]
  - Muscular weakness [Unknown]
  - Hypokalaemia [Recovered/Resolved]
  - Muscle spasms [Unknown]
  - Therapeutic response decreased [Unknown]
  - Primary hyperaldosteronism [Unknown]
  - Metabolic alkalosis [Unknown]
